FAERS Safety Report 26066174 (Version 1)
Quarter: 2025Q4

REPORT INFORMATION
  Report Type: Spontaneous
  Country: EU (occurrence: EU)
  Receive Date: 20251119
  Receipt Date: 20251119
  Transmission Date: 20260118
  Serious: Yes (Life-Threatening)
  Sender: ELI LILLY AND COMPANY
  Company Number: None

PATIENT
  Age: 73 Year
  Sex: Female

DRUGS (3)
  1. PEMETREXED [Suspect]
     Active Substance: PEMETREXED
     Indication: Lung carcinoma cell type unspecified stage IV
     Dosage: 828 MG, UNKNOWN
     Route: 042
     Dates: start: 20251031, end: 20251031
  2. CARBOPLATIN [Suspect]
     Active Substance: CARBOPLATIN
     Indication: Lung carcinoma cell type unspecified stage IV
     Dosage: 470 MG, UNKNOWN
     Route: 042
     Dates: start: 20251031, end: 20251031
  3. KEYTRUDA [Suspect]
     Active Substance: PEMBROLIZUMAB
     Indication: Lung carcinoma cell type unspecified stage IV
     Dosage: 200 MG, UNKNOWN
     Route: 042
     Dates: start: 20251031, end: 20251031

REACTIONS (2)
  - Thrombocytopenia [Unknown]
  - Anaemia [Unknown]

NARRATIVE: CASE EVENT DATE: 20251107
